FAERS Safety Report 10087132 (Version 1)
Quarter: 2014Q2

REPORT INFORMATION
  Report Type: Report from Study
  Country: CN (occurrence: CN)
  Receive Date: 20140418
  Receipt Date: 20140418
  Transmission Date: 20141212
  Serious: Yes (Hospitalization, Other)
  Sender: FDA-Public Use
  Company Number: CN-ASTELLAS-2014US003814

PATIENT
  Age: 50 Year
  Sex: Male

DRUGS (2)
  1. ERLOTINIB [Suspect]
     Indication: SQUAMOUS CELL CARCINOMA OF LUNG
     Route: 048
     Dates: start: 20140301
  2. ERLOTINIB [Suspect]
     Dosage: PRODUCED BY ITALY
     Route: 048
     Dates: start: 20140324

REACTIONS (2)
  - Respiratory failure [Recovering/Resolving]
  - Rash [Unknown]
